FAERS Safety Report 6489955-1 (Version None)
Quarter: 2009Q4

REPORT INFORMATION
  Report Type: 
  Country: None (occurrence: None)
  Receive Date: 20091211
  Receipt Date: 20091203
  Transmission Date: 20100525
  Serious: Yes (Disabling, Other)
  Sender: FDA-Public Use
  Company Number: PHHO2007IT07752

PATIENT
  Sex: Female
  Weight: 48 kg

DRUGS (6)
  1. ZOLEDRONATE T29581+SOLINJ+BM [Suspect]
     Indication: METASTASES TO BONE
     Dosage: 4MG EVERY 3 MONTHS
     Route: 042
     Dates: start: 20061023, end: 20070115
  2. VITAMIN D [Concomitant]
  3. CALCIUM [Concomitant]
  4. VINORELBINE [Concomitant]
     Dosage: UNK
     Dates: start: 20060701, end: 20070201
  5. FLUOROURACIL [Concomitant]
     Dosage: UNK
     Dates: start: 20060701, end: 20070201
  6. FOLINIC ACID [Concomitant]

REACTIONS (5)
  - JAW DISORDER [None]
  - LUNG NEOPLASM MALIGNANT [None]
  - MALIGNANT NEOPLASM PROGRESSION [None]
  - OSTEONECROSIS [None]
  - SWELLING [None]
